FAERS Safety Report 5646932-8 (Version None)
Quarter: 2008Q1

REPORT INFORMATION
  Report Type: 
  Country: None (occurrence: None)
  Receive Date: 20080229
  Receipt Date: 20080229
  Transmission Date: 20080703
  Serious: Yes (Disabling, Other)
  Sender: FDA-Public Use
  Company Number: None

PATIENT
  Age: 59 Year
  Sex: Female
  Weight: 86.1834 kg

DRUGS (2)
  1. LIPITOR [Suspect]
     Indication: BLOOD CHOLESTEROL INCREASED
     Dosage: DAILY
  2. ZETIA [Suspect]

REACTIONS (5)
  - AMNESIA [None]
  - CONFUSIONAL STATE [None]
  - FEAR [None]
  - MENTAL DISORDER [None]
  - STRESS [None]
